FAERS Safety Report 7489259-4 (Version None)
Quarter: 2011Q2

REPORT INFORMATION
  Report Type: 
  Country: None (occurrence: None)
  Receive Date: 20110518
  Receipt Date: 20110513
  Transmission Date: 20111010
  Serious: Yes (Hospitalization, Other)
  Sender: FDA-Public Use
  Company Number: US-PFIZER INC-2011073346

PATIENT
  Sex: Female
  Weight: 59 kg

DRUGS (3)
  1. PREMARIN [Suspect]
     Indication: HORMONE REPLACEMENT THERAPY
     Dosage: 0.3 MG, UNK
     Route: 048
     Dates: start: 20030101
  2. PREMARIN [Suspect]
  3. VITAMINS [Concomitant]
     Dosage: UNK

REACTIONS (12)
  - ATRIAL TACHYCARDIA [None]
  - VOMITING [None]
  - COLD SWEAT [None]
  - DIZZINESS [None]
  - JAUNDICE [None]
  - HEART RATE ABNORMAL [None]
  - INFLUENZA LIKE ILLNESS [None]
  - CHROMATURIA [None]
  - NAUSEA [None]
  - DYSPNOEA [None]
  - HEPATIC ENZYME INCREASED [None]
  - HEART RATE INCREASED [None]
